FAERS Safety Report 8995871 (Version 2)
Quarter: 2013Q1

REPORT INFORMATION
  Report Type: Report from Study
  Country: US (occurrence: US)
  Receive Date: 20130103
  Receipt Date: 20130114
  Transmission Date: 20140127
  Serious: Yes (Other)
  Sender: FDA-Public Use
  Company Number: US-ABBOTT-12P-163-1028002-00

PATIENT
  Sex: Female
  Weight: 82.63 kg

DRUGS (4)
  1. HUMIRA [Suspect]
     Indication: PSORIATIC ARTHROPATHY
     Dates: start: 200712, end: 201212
  2. HUMIRA [Suspect]
     Dates: start: 20121227
  3. TACLONEX [Concomitant]
     Indication: PRODUCT USED FOR UNKNOWN INDICATION
     Dosage: DAILY TO APPLY AS NEEDED TO AFFECTED AREAS
     Route: 061
  4. DESONIDE [Concomitant]
     Indication: PRODUCT USED FOR UNKNOWN INDICATION
     Dosage: DAILY TO APPLY AS NEEDED TO AFFECTED AREAS
     Route: 061

REACTIONS (1)
  - Angle closure glaucoma [Unknown]
